FAERS Safety Report 17806818 (Version 2)
Quarter: 2020Q3

REPORT INFORMATION
  Report Type: Spontaneous
  Country: US (occurrence: US)
  Receive Date: 20200520
  Receipt Date: 20200706
  Transmission Date: 20201102
  Serious: Yes (Other)
  Sender: FDA-Public Use
  Company Number: US-GLENMARK PHARMACEUTICALS-2020GMK047756

PATIENT

DRUGS (10)
  1. LANSOPRAZOLE. [Concomitant]
     Active Substance: LANSOPRAZOLE
     Indication: GASTROOESOPHAGEAL REFLUX DISEASE
     Dosage: 30 MILLIGRAM, QD
     Route: 065
  2. METOPROLOL TARTRATE. [Concomitant]
     Active Substance: METOPROLOL TARTRATE
     Indication: TACHYCARDIA
     Dosage: 25 MILLIGRAM, QD (1/2 TABLET BID)
     Route: 065
  3. TIZANIDINE. [Concomitant]
     Active Substance: TIZANIDINE
     Indication: BACK PAIN
     Dosage: 4 MILLIGRAM, BID (4 MG, 1 TABLET TWICE A DAY)
     Route: 065
  4. TOPIRAMATE TABLETS USP, 100 MG [Suspect]
     Active Substance: TOPIRAMATE
     Indication: SEIZURE
     Dosage: 125 MILLIGRAM, BID
     Route: 048
     Dates: start: 201912
  5. TOPIRAMATE. [Suspect]
     Active Substance: TOPIRAMATE
     Dosage: 25 MILLIGRAM, BID (ALONG WITH GLENMARK^S 100 MG TABLET TO MAKE TOTAL DOSE OF 125 MG)
     Route: 048
     Dates: start: 202004
  6. TOPIRAMATE. [Suspect]
     Active Substance: TOPIRAMATE
     Indication: SEIZURE
     Dosage: UNK (ZYDUS)
     Route: 048
     Dates: start: 201606
  7. VITAMIN D                          /00107901/ [Concomitant]
     Active Substance: ERGOCALCIFEROL
     Indication: PRODUCT USED FOR UNKNOWN INDICATION
     Dosage: UNK
     Route: 065
  8. TOPIRAMATE. [Suspect]
     Active Substance: TOPIRAMATE
     Dosage: 25 MILLIGRAM, BID (ALONG WITH GLENMARK^S 100 MG TABLET TO MAKE TOTAL DOSE OF 125 MG)
     Route: 048
     Dates: start: 201912
  9. TOPIRAMATE. [Suspect]
     Active Substance: TOPIRAMATE
     Dosage: 50 MILLIGRAM, BID (ALONG WITH GLENMARK^S 100 MG TABLET TO MAKE TOTAL DOSE OF 150 MG)
     Route: 048
     Dates: start: 202002
  10. LORAZEPAM. [Concomitant]
     Active Substance: LORAZEPAM
     Indication: ANXIETY
     Dosage: 0.5 MILLIGRAM, PRN (0.5 MG, TWICE A DAY AS NEEDED)
     Route: 065

REACTIONS (5)
  - Restless legs syndrome [Unknown]
  - Malaise [Not Recovered/Not Resolved]
  - Drug ineffective [Unknown]
  - Seizure [Not Recovered/Not Resolved]
  - Product dispensing error [Unknown]

NARRATIVE: CASE EVENT DATE: 201912
